FAERS Safety Report 17489024 (Version 1)
Quarter: 2020Q1

REPORT INFORMATION
  Report Type: Spontaneous
  Country: US (occurrence: US)
  Receive Date: 20200303
  Receipt Date: 20200303
  Transmission Date: 20200409
  Serious: Yes (Other)
  Sender: FDA-Public Use
  Company Number: US-THERAPEUTICSMD-2020TMD00901

PATIENT
  Age: 83 Year
  Sex: Female
  Weight: 60.77 kg

DRUGS (6)
  1. MULTIVITAMINS [Concomitant]
     Active Substance: VITAMINS
  2. IMVEXXY [Suspect]
     Active Substance: ESTRADIOL
     Dosage: UNK, 3X/WEEK AT NIGHT (M,W,F)
     Route: 067
     Dates: start: 20200203
  3. UNSPECIFIED THYROID PILL [Concomitant]
     Dosage: 75 MG, 1X/DAY
  4. ATORVASTATIN [Concomitant]
     Active Substance: ATORVASTATIN
     Dosage: 10 MG, EVERY OTHER DAY
  5. IMVEXXY [Suspect]
     Active Substance: ESTRADIOL
     Indication: UNEVALUABLE EVENT
     Dosage: UNK UNK, 2X/WEEK AT NIGHT
     Route: 067
     Dates: end: 2020
  6. ^PROTONIC PANTOPRAZOLE^ [Concomitant]
     Dosage: 1 DOSAGE UNITS, 1X/DAY

REACTIONS (8)
  - Heart rate increased [Not Recovered/Not Resolved]
  - Nephrostomy [Recovered/Resolved]
  - Anxiety [Not Recovered/Not Resolved]
  - Therapeutic product effect incomplete [Recovered/Resolved]
  - Hypertension [Not Recovered/Not Resolved]
  - Urinary tract obstruction [Recovered/Resolved]
  - Palpitations [Not Recovered/Not Resolved]
  - Off label use [Not Recovered/Not Resolved]

NARRATIVE: CASE EVENT DATE: 20191111
